FAERS Safety Report 4520322-3 (Version None)
Quarter: 2004Q4

REPORT INFORMATION
  Report Type: 
  Country: None (occurrence: None)
  Receive Date: 20041207
  Receipt Date: 20041112
  Transmission Date: 20050328
  Serious: Yes (Hospitalization)
  Sender: FDA-Public Use
  Company Number: US-GLAXOSMITHKLINE-A0533792A

PATIENT
  Age: 54 Year
  Sex: Female

DRUGS (6)
  1. VINORELBINE TARTRATE [Suspect]
     Indication: BREAST CANCER
     Dosage: 48MG CYCLIC
     Route: 042
     Dates: start: 20040218, end: 20041020
  2. GEMCITABINE [Suspect]
     Indication: BREAST CANCER
     Dosage: 1900MG CYCLIC
     Route: 042
     Dates: start: 20040218, end: 20041020
  3. AMBIEN [Concomitant]
  4. NORVASC [Concomitant]
  5. ALLEGRA [Concomitant]
  6. ALPRAZOLAM [Concomitant]

REACTIONS (8)
  - ABDOMINAL TENDERNESS [None]
  - DISEASE PROGRESSION [None]
  - HEPATIC ENZYME INCREASED [None]
  - HYPERBILIRUBINAEMIA [None]
  - JAUNDICE [None]
  - NAUSEA [None]
  - PYREXIA [None]
  - VOMITING [None]
